FAERS Safety Report 5720621-3 (Version None)
Quarter: 2008Q2

REPORT INFORMATION
  Report Type: 
  Country: None (occurrence: None)
  Receive Date: 20080429
  Receipt Date: 20080402
  Transmission Date: 20081010
  Serious: No
  Sender: FDA-Public Use
  Company Number: PT-JNJFOC-20080202674

PATIENT
  Sex: Male

DRUGS (1)
  1. GALANTAMINE [Suspect]
     Indication: DEMENTIA ALZHEIMER'S TYPE
     Route: 048

REACTIONS (3)
  - AGITATION [None]
  - INCORRECT DOSE ADMINISTERED [None]
  - NIGHTMARE [None]
